FAERS Safety Report 8126106-1 (Version None)
Quarter: 2012Q1

REPORT INFORMATION
  Report Type: 
  Country: None (occurrence: None)
  Receive Date: 20120209
  Receipt Date: 20120201
  Transmission Date: 20120608
  Serious: Yes (Hospitalization)
  Sender: FDA-Public Use
  Company Number: PHHY2012BE008034

PATIENT
  Sex: Female

DRUGS (8)
  1. BETASERC [Concomitant]
     Indication: VERTIGO
  2. GLUCOPHAGE [Concomitant]
     Indication: DIABETES MELLITUS
     Dosage: 500 MG, QD
     Dates: end: 20110801
  3. LERCANIDIPINE [Concomitant]
     Indication: HYPERTENSION
     Dosage: 80 MG, QD
  4. LEVOTHYROXINE SODIUM [Concomitant]
     Indication: HYPOTHYROIDISM
  5. RASILEZ [Suspect]
     Indication: HYPERTENSION
     Dosage: 150 MG, QD
     Route: 048
     Dates: start: 20090101, end: 20110801
  6. ACE INHIBITORS [Concomitant]
  7. MICARDIS [Concomitant]
     Indication: HYPERTENSION
     Dosage: 80 MG, QD
  8. CORDARONE [Concomitant]
     Indication: HEART RATE ABNORMAL
     Dosage: 0.25 DF, QD

REACTIONS (6)
  - ARTHRALGIA [None]
  - BLOOD PRESSURE INCREASED [None]
  - DEHYDRATION [None]
  - RENAL FAILURE [None]
  - AZOTAEMIA [None]
  - BLOOD CREATININE INCREASED [None]
